FAERS Safety Report 6286438-9 (Version None)
Quarter: 2009Q3

REPORT INFORMATION
  Report Type: 
  Country: None (occurrence: None)
  Receive Date: 20090728
  Receipt Date: 20090721
  Transmission Date: 20100115
  Serious: Yes (Hospitalization)
  Sender: FDA-Public Use
  Company Number: A0757319A

PATIENT
  Age: 58 Year
  Sex: Female

DRUGS (8)
  1. AVANDIA [Suspect]
     Route: 048
     Dates: start: 20001101
  2. ASPIRIN [Concomitant]
  3. PLAVIX [Concomitant]
  4. CAPTOPRIL [Concomitant]
  5. ACCUPRIL [Concomitant]
  6. ADVICOR [Concomitant]
  7. DIOVAN [Concomitant]
  8. NORVASC [Concomitant]

REACTIONS (3)
  - ABDOMINAL DISTENSION [None]
  - MYOCARDIAL INFARCTION [None]
  - WEIGHT INCREASED [None]
